FAERS Safety Report 5874421-4 (Version None)
Quarter: 2008Q3

REPORT INFORMATION
  Report Type: 
  Country: None (occurrence: None)
  Receive Date: 20080908
  Receipt Date: 20080827
  Transmission Date: 20090109
  Serious: Yes (Other)
  Sender: FDA-Public Use
  Company Number: US-PFIZER INC-2008064895

PATIENT
  Sex: Male
  Weight: 81.4 kg

DRUGS (6)
  1. VIAGRA [Suspect]
     Indication: ERECTILE DYSFUNCTION
  2. ANTIHYPERTENSIVES [Suspect]
     Indication: HYPERTENSION
  3. ANTI-DIABETICS [Suspect]
     Indication: DIABETES MELLITUS
  4. WARFARIN SODIUM [Concomitant]
  5. LASIX [Concomitant]
     Indication: FLUID RETENTION
  6. METOPROLOL TARTRATE [Concomitant]

REACTIONS (3)
  - DIABETES MELLITUS [None]
  - DRUG INEFFECTIVE [None]
  - THERAPEUTIC RESPONSE INCREASED [None]
